FAERS Safety Report 8988168 (Version 1)
Quarter: 2012Q4

REPORT INFORMATION
  Report Type: 
  Country: ES (occurrence: ES)
  Receive Date: 20121227
  Receipt Date: 20121227
  Transmission Date: 20130627
  Serious: Yes (Other)
  Sender: FDA-Public Use
  Company Number: ES-BRISTOL-MYERS SQUIBB COMPANY-17247180

PATIENT
  Age: 74 Year
  Sex: Female

DRUGS (1)
  1. TRIAMCINOLONE ACE INJ [Suspect]

REACTIONS (1)
  - Uveitis [Unknown]
